FAERS Safety Report 19812470 (Version 1)
Quarter: 2021Q3

REPORT INFORMATION
  Report Type: Spontaneous
  Country: DO (occurrence: DO)
  Receive Date: 20210909
  Receipt Date: 20210909
  Transmission Date: 20211014
  Serious: Yes (Other)
  Sender: FDA-Public Use
  Company Number: DO-UCBSA-2021042581

PATIENT
  Sex: Female

DRUGS (1)
  1. KEPPRA [Suspect]
     Active Substance: LEVETIRACETAM
     Indication: EPILEPSY
     Dosage: 500 UNK

REACTIONS (4)
  - Renal disorder [Unknown]
  - Renal adenoma [Unknown]
  - Pulmonary mass [Unknown]
  - Joint neoplasm [Unknown]
